FAERS Safety Report 5858911-6 (Version None)
Quarter: 2008Q3

REPORT INFORMATION
  Report Type: 
  Country: None (occurrence: None)
  Receive Date: 20080825
  Receipt Date: 20080820
  Transmission Date: 20090109
  Serious: Yes (Hospitalization)
  Sender: FDA-Public Use
  Company Number: TPA2008A01322

PATIENT
  Age: 59 Year
  Sex: Male

DRUGS (3)
  1. ACTOS [Suspect]
     Indication: DIABETES MELLITUS
     Dosage: 45 MG, 2 IN 1 D, PER ORAL
     Route: 048
  2. LEVEMIR [Concomitant]
  3. INSULIN (INSULIN DETEMIR) [Concomitant]

REACTIONS (1)
  - HERPES ZOSTER [None]
